FAERS Safety Report 13059079 (Version 3)
Quarter: 2017Q1

REPORT INFORMATION
  Report Type: Spontaneous
  Country: US (occurrence: US)
  Receive Date: 20161223
  Receipt Date: 20170213
  Transmission Date: 20170428
  Serious: No
  Sender: FDA-Public Use
  Company Number: US-HORIZON-ACT-0300-2016

PATIENT
  Age: 34 Year
  Sex: Male

DRUGS (6)
  1. IMMURAN [Concomitant]
  2. BACTRIM [Concomitant]
     Active Substance: SULFAMETHOXAZOLE\TRIMETHOPRIM
  3. MULTIVITAMIN [Concomitant]
     Active Substance: VITAMINS
  4. ACTIMMUNE [Suspect]
     Active Substance: INTERFERON GAMMA-1B
     Indication: CHRONIC GRANULOMATOUS DISEASE
     Dosage: 0.5 ML TIW
     Dates: start: 20130114
  5. SPORANOX [Concomitant]
     Active Substance: ITRACONAZOLE
  6. LISINOPRIL. [Concomitant]
     Active Substance: LISINOPRIL

REACTIONS (5)
  - Influenza like illness [Unknown]
  - Drug dose omission [Unknown]
  - Wrong technique in product usage process [Unknown]
  - Lack of injection site rotation [Unknown]
  - Intentional product misuse [Unknown]
